FAERS Safety Report 8265473-5 (Version None)
Quarter: 2012Q2

REPORT INFORMATION
  Report Type: 
  Country: None (occurrence: None)
  Receive Date: 20120406
  Receipt Date: 20120402
  Transmission Date: 20120825
  Serious: Yes (Congenital Anomaly, Other)
  Sender: FDA-Public Use
  Company Number: US-PFIZER INC-2012056941

PATIENT
  Sex: Male
  Weight: 2 kg

DRUGS (5)
  1. GARDASIL [Concomitant]
     Dosage: UNK, ONE DOSE
     Route: 064
     Dates: start: 20110523, end: 20110523
  2. LANTUS [Concomitant]
     Dosage: 10 IU, 1X/DAY
     Route: 064
  3. DEPO-PROVERA [Suspect]
     Indication: CONTRACEPTION
     Dosage: 150 MG,
     Route: 064
     Dates: start: 20110523, end: 20110523
  4. HUMALOG [Concomitant]
     Dosage: UNK, (Q DAY)
     Route: 064
  5. PROMETHAZINE [Concomitant]
     Dosage: UNK, AS NEEDED
     Route: 064

REACTIONS (2)
  - VENTRICULAR SEPTAL DEFECT [None]
  - MATERNAL EXPOSURE TIMING UNSPECIFIED [None]
